FAERS Safety Report 7371860-X (Version None)
Quarter: 2011Q1

REPORT INFORMATION
  Report Type: 
  Country: None (occurrence: None)
  Receive Date: 20110324
  Receipt Date: 20110317
  Transmission Date: 20110831
  Serious: Yes (Death)
  Sender: FDA-Public Use
  Company Number: US-ROCHE-766628

PATIENT
  Age: 71 Year
  Sex: Male

DRUGS (7)
  1. PREDNISONE [Suspect]
     Route: 048
  2. HYDROCODONE BITARTRATE + ACETAMINOPHEN [Suspect]
     Dosage: DRUG: ACETAMINOPHEN/HYDROCODONE
     Route: 048
  3. DEXTROPROPOXYPHENE [Suspect]
     Dosage: DRUG: PROPOXYPHENE
     Route: 048
  4. DIAZEPAM [Suspect]
     Route: 048
  5. DIAZEPAM [Suspect]
     Route: 048
  6. HYDROXYCHLOROQUINE SULFATE [Suspect]
     Route: 048
  7. IBUPROFEN [Suspect]
     Route: 048

REACTIONS (1)
  - TOXICITY TO VARIOUS AGENTS [None]
